FAERS Safety Report 11856623 (Version 1)
Quarter: 2015Q4

REPORT INFORMATION
  Report Type: Spontaneous
  Country: GB (occurrence: GB)
  Receive Date: 20151221
  Receipt Date: 20151221
  Transmission Date: 20160305
  Serious: Yes (Disabling)
  Sender: FDA-Public Use
  Company Number: GB-TEVA-617934ACC

PATIENT
  Sex: Female

DRUGS (2)
  1. AMOXICILLIN. [Suspect]
     Active Substance: AMOXICILLIN
     Indication: GINGIVITIS
     Route: 048
  2. METRONIDAZOLE. [Suspect]
     Active Substance: METRONIDAZOLE

REACTIONS (8)
  - Menstruation delayed [Unknown]
  - Abdominal pain [Unknown]
  - Abdominal distension [Unknown]
  - Premenstrual syndrome [Unknown]
  - Depression [Unknown]
  - Headache [Unknown]
  - Fatigue [Unknown]
  - Irritability [Unknown]
